FAERS Safety Report 6698739-0 (Version None)
Quarter: 2010Q2

REPORT INFORMATION
  Report Type: 
  Country: None (occurrence: None)
  Receive Date: 20100427
  Receipt Date: 20100419
  Transmission Date: 20101027
  Serious: Yes (Hospitalization)
  Sender: FDA-Public Use
  Company Number: TR-ELI_LILLY_AND_COMPANY-TR201004005221

PATIENT
  Age: 37 Year
  Sex: Male

DRUGS (7)
  1. HUMALOG [Suspect]
     Indication: DIABETES MELLITUS
     Dosage: 34 U, 3/D
     Route: 058
     Dates: start: 20100120
  2. LANTUS [Concomitant]
     Indication: DIABETES MELLITUS
     Dosage: 36 U, EACH EVENING
     Route: 058
  3. DIAFORMIN [Concomitant]
     Indication: DIABETES MELLITUS
     Dosage: UNK, 2/D
     Route: 048
  4. ASPIRIN [Concomitant]
     Indication: CARDIAC DISORDER
     Dosage: UNK, DAILY (1/D)
     Route: 048
  5. DILATREND [Concomitant]
     Indication: CARDIAC DISORDER
     Dosage: UNK, DAILY (1/D)
     Route: 048
  6. INHIBACE [Concomitant]
     Indication: CARDIAC DISORDER
     Dosage: UNK, DAILY (1/D)
     Route: 048
  7. PULCET [Concomitant]
     Indication: GASTROINTESTINAL DISORDER
     Dosage: UNK, DAILY (1/D)
     Route: 048

REACTIONS (2)
  - BLOOD GLUCOSE INCREASED [None]
  - MYOCARDIAL INFARCTION [None]
